FAERS Safety Report 6013818-9 (Version None)
Quarter: 2008Q4

REPORT INFORMATION
  Report Type: 
  Country: None (occurrence: None)
  Receive Date: 20081219
  Receipt Date: 20081210
  Transmission Date: 20090506
  Serious: Yes (Hospitalization)
  Sender: FDA-Public Use
  Company Number: FR-PFIZER INC-2008152248

PATIENT

DRUGS (12)
  1. CAMPTOSAR [Suspect]
     Indication: PANCREATIC CARCINOMA METASTATIC
     Dosage: 190 MG (100 MG/M2), EVERY DAY
     Route: 042
     Dates: start: 20081117, end: 20081119
  2. FLUOROURACIL [Suspect]
     Indication: PANCREATIC CARCINOMA METASTATIC
     Dosage: 4400 MG (2400 MG/M2), EVERY DAY
     Route: 042
     Dates: start: 20081117, end: 20081118
  3. CALCIUM LEVOFOLINATE [Suspect]
     Indication: PANCREATIC CARCINOMA METASTATIC
     Dosage: 370 MG (200 MG/M2)
     Dates: start: 20081117, end: 20081117
  4. TRIVASTAL [Concomitant]
  5. MODOPAR [Concomitant]
  6. KARDEGIC [Concomitant]
  7. DIAMICRON [Concomitant]
  8. TADENAN [Concomitant]
  9. DOLIPRANE [Concomitant]
  10. NEXIUM [Concomitant]
  11. MELAXOSE [Concomitant]
  12. INDAPAMIDE [Concomitant]

REACTIONS (3)
  - DIARRHOEA [None]
  - DYSPHAGIA [None]
  - GENERAL PHYSICAL HEALTH DETERIORATION [None]
